FAERS Safety Report 20490689 (Version 1)
Quarter: 2022Q1

REPORT INFORMATION
  Report Type: Spontaneous
  Country: US (occurrence: US)
  Receive Date: 20220218
  Receipt Date: 20220218
  Transmission Date: 20220423
  Serious: No
  Sender: FDA-Public Use
  Company Number: US-BRISTOL-MYERS SQUIBB COMPANY-BMS-2022-023457

PATIENT
  Age: 25 Year
  Sex: Female

DRUGS (2)
  1. ORENCIA [Suspect]
     Active Substance: ABATACEPT
     Indication: Arthralgia
     Dosage: 125 MILLIGRAM, QWK
     Route: 058
     Dates: start: 20211221
  2. ORENCIA [Suspect]
     Active Substance: ABATACEPT
     Indication: Arthralgia
     Dosage: 125 MILLIGRAM, QWK
     Route: 058
     Dates: start: 20211221

REACTIONS (2)
  - Malaise [Unknown]
  - Irritability [Unknown]
